FAERS Safety Report 5913442-X (Version None)
Quarter: 2008Q4

REPORT INFORMATION
  Report Type: 
  Country: None (occurrence: None)
  Receive Date: 20081009
  Receipt Date: 20080925
  Transmission Date: 20090506
  Serious: No
  Sender: FDA-Public Use
  Company Number: US-BAYER-200813886BCC

PATIENT
  Age: 63 Year
  Sex: Female
  Weight: 73 kg

DRUGS (2)
  1. ALEVE [Suspect]
     Indication: SCIATICA
     Dosage: TOTAL DAILY DOSE: 440 MG  UNIT DOSE: 220 MG
     Route: 048
     Dates: start: 20080924
  2. REQUIP [Concomitant]

REACTIONS (9)
  - ANXIETY [None]
  - DEHYDRATION [None]
  - EYE DISORDER [None]
  - FEELING ABNORMAL [None]
  - HEADACHE [None]
  - NAUSEA [None]
  - NOCTURIA [None]
  - SOMNOLENCE [None]
  - VOMITING [None]
